FAERS Safety Report 4354446-0 (Version None)
Quarter: 2004Q2

REPORT INFORMATION
  Report Type: 
  Country: None (occurrence: None)
  Receive Date: 20040503
  Receipt Date: 20040420
  Transmission Date: 20050107
  Serious: Yes (Other)
  Sender: FDA-Public Use
  Company Number: 2004026995

PATIENT
  Sex: Male

DRUGS (1)
  1. ZOLOFT [Suspect]
     Indication: ILL-DEFINED DISORDER

REACTIONS (4)
  - DISORIENTATION [None]
  - FEELING ABNORMAL [None]
  - MUSCLE TWITCHING [None]
  - ROAD TRAFFIC ACCIDENT [None]
